FAERS Safety Report 8720492 (Version 3)
Quarter: 2015Q3

REPORT INFORMATION
  Report Type: Report from Study
  Country: US (occurrence: US)
  Receive Date: 20120813
  Receipt Date: 20150702
  Transmission Date: 20151125
  Serious: Yes (Other)
  Sender: FDA-Public Use
  Company Number: US-ROCHE-1098744

PATIENT
  Sex: Male

DRUGS (4)
  1. HEPARIN [Concomitant]
     Active Substance: HEPARIN SODIUM
     Dosage: 1000 UNITS PER HOUR
     Route: 042
  2. PROCARDIA (UNITED STATES) [Concomitant]
     Route: 060
  3. ACTIVASE [Suspect]
     Active Substance: ALTEPLASE
     Indication: ACUTE MYOCARDIAL INFARCTION
     Route: 065
  4. NITROGLYCERINE [Concomitant]
     Active Substance: NITROGLYCERIN
     Route: 041

REACTIONS (7)
  - Ventricular tachycardia [Unknown]
  - Asthenia [Unknown]
  - Ventricular extrasystoles [Unknown]
  - Nausea [Unknown]
  - Sinus bradycardia [Unknown]
  - Ill-defined disorder [Unknown]
  - Hypertension [Unknown]
